FAERS Safety Report 23822470 (Version 1)
Quarter: 2024Q2

REPORT INFORMATION
  Report Type: Spontaneous
  Country: US (occurrence: None)
  Receive Date: 20240504
  Receipt Date: 20240504
  Transmission Date: 20240716
  Serious: Yes (Hospitalization)
  Sender: FDA-Public Use
  Company Number: None

PATIENT
  Age: 55 Year
  Sex: Male
  Weight: 108 kg

DRUGS (2)
  1. TRAZODONE HCL [Suspect]
     Active Substance: TRAZODONE HYDROCHLORIDE
     Indication: Insomnia
     Dosage: 100 MG AT BEDTIME PO
     Route: 048
     Dates: start: 20221228, end: 20231221
  2. PRAZOSIN HYDROCHLORIDE [Suspect]
     Active Substance: PRAZOSIN HYDROCHLORIDE
     Indication: Post-traumatic stress disorder
     Dosage: 2 MG AT BEDTIME PO?
     Route: 048
     Dates: start: 20230214

REACTIONS (1)
  - Priapism [None]

NARRATIVE: CASE EVENT DATE: 20231202
